FAERS Safety Report 20819856 (Version 1)
Quarter: 2022Q2

REPORT INFORMATION
  Report Type: Spontaneous
  Country: US (occurrence: None)
  Receive Date: 20220512
  Receipt Date: 20220512
  Transmission Date: 20220721
  Serious: No
  Sender: FDA-Public Use
  Company Number: None

PATIENT
  Age: 48 Year
  Sex: Male

DRUGS (1)
  1. IBUPROFEN [Suspect]
     Active Substance: IBUPROFEN
     Dosage: FREQUENCY : TWICE A DAY;?DOSE: ONE TAB
     Route: 048
     Dates: end: 20211214

REACTIONS (4)
  - Anaphylactic reaction [None]
  - Angioedema [None]
  - Swollen tongue [None]
  - Pharyngeal swelling [None]

NARRATIVE: CASE EVENT DATE: 20211214
